FAERS Safety Report 9486461 (Version 5)
Quarter: 2014Q3

REPORT INFORMATION
  Report Type: Report from Study
  Country: AR (occurrence: AR)
  Receive Date: 20130829
  Receipt Date: 20140912
  Transmission Date: 20150326
  Serious: Yes (Life-Threatening, Disabling, Other)
  Sender: FDA-Public Use
  Company Number: AR-US-EMD SERONO, INC.-7233537

PATIENT
  Age: 52 Year
  Sex: Female
  Weight: 54 kg

DRUGS (3)
  1. REBIF [Suspect]
     Active Substance: INTERFERON BETA-1A
     Dates: start: 20040715, end: 201308
  2. REBIF [Suspect]
     Active Substance: INTERFERON BETA-1A
     Indication: MULTIPLE SCLEROSIS
     Dates: start: 19970415, end: 20040415
  3. REBIF [Suspect]
     Active Substance: INTERFERON BETA-1A
     Dates: end: 20140425

REACTIONS (15)
  - Apathy [Recovering/Resolving]
  - Tachycardia [Recovered/Resolved]
  - Cardiac arrest [Recovered/Resolved]
  - Anxiety [Unknown]
  - Asthenia [Unknown]
  - Fall [Unknown]
  - Hypoaesthesia [Unknown]
  - Cerebrovascular accident [Recovered/Resolved]
  - Weight decreased [Recovering/Resolving]
  - Speech disorder [Recovering/Resolving]
  - Pulmonary oedema [Recovering/Resolving]
  - Multiple fractures [Unknown]
  - Arrhythmia [Recovered/Resolved]
  - Fear [Unknown]
  - Ankle fracture [Recovering/Resolving]

NARRATIVE: CASE EVENT DATE: 201308
